FAERS Safety Report 4366271-5 (Version None)
Quarter: 2004Q2

REPORT INFORMATION
  Report Type: 
  Country: None (occurrence: None)
  Receive Date: 20040520
  Receipt Date: 20040511
  Transmission Date: 20050107
  Serious: Yes (Other)
  Sender: FDA-Public Use
  Company Number: HQWYE849012MAY04

PATIENT
  Age: 26 Year
  Sex: Female
  Weight: 57.2 kg

DRUGS (5)
  1. EFFEXOR XR [Suspect]
     Indication: BIPOLAR DISORDER
     Dosage: 150 MG 1 X  PER 1 DAY, ORAL
     Route: 048
     Dates: start: 20040101
  2. ALCOHOL (ETHANOL) [Suspect]
     Dosage: 1 OR 2 BEERS, ORAL
     Route: 048
  3. DOXYCYCLINE (DOXYCYCLINE) [Concomitant]
  4. STRATTERA [Concomitant]
  5. CLONAZEPAM [Concomitant]

REACTIONS (5)
  - AGGRESSION [None]
  - DISSOCIATIVE DISORDER [None]
  - LEGAL PROBLEM [None]
  - PHYSICAL ASSAULT [None]
  - PSYCHOTIC DISORDER [None]
